FAERS Safety Report 12976780 (Version 2)
Quarter: 2017Q2

REPORT INFORMATION
  Report Type: Report from Study
  Country: US (occurrence: US)
  Receive Date: 20161128
  Receipt Date: 20170419
  Transmission Date: 20170830
  Serious: Yes (Other)
  Sender: FDA-Public Use
  Company Number: PHEH2016US030364

PATIENT
  Sex: Male

DRUGS (2)
  1. VOTRIENT [Suspect]
     Active Substance: PAZOPANIB HYDROCHLORIDE
     Indication: METASTASES TO BONE
  2. VOTRIENT [Suspect]
     Active Substance: PAZOPANIB HYDROCHLORIDE
     Indication: METASTATIC RENAL CELL CARCINOMA
     Dosage: 800 MG, QD
     Route: 048

REACTIONS (13)
  - Eye colour change [Unknown]
  - Diarrhoea [Unknown]
  - Pruritus [Unknown]
  - Paraesthesia [Unknown]
  - Blister [Unknown]
  - Yellow skin [Unknown]
  - Psychiatric symptom [Unknown]
  - Palmar-plantar erythrodysaesthesia syndrome [Unknown]
  - Neoplasm [Unknown]
  - Hair colour changes [Unknown]
  - Abasia [Unknown]
  - Skin irritation [Unknown]
  - Drug ineffective [Unknown]
